FAERS Safety Report 15976893 (Version 3)
Quarter: 2019Q1

REPORT INFORMATION
  Report Type: Spontaneous
  Country: US (occurrence: US)
  Receive Date: 20190218
  Receipt Date: 20190320
  Transmission Date: 20190418
  Serious: No
  Sender: FDA-Public Use
  Company Number: US-BAYER-2019-034084

PATIENT
  Age: 27 Year
  Sex: Female

DRUGS (1)
  1. KYLEENA [Suspect]
     Active Substance: LEVONORGESTREL
     Indication: CONTRACEPTION
     Dosage: 17.5 MCG/24HR, CONT
     Route: 015
     Dates: start: 201803

REACTIONS (3)
  - Abdominal pain lower [None]
  - Discomfort [None]
  - Abdominal pain lower [None]

NARRATIVE: CASE EVENT DATE: 20180427
